FAERS Safety Report 16797605 (Version 11)
Quarter: 2025Q4

REPORT INFORMATION
  Report Type: Report from Study
  Country: CA (occurrence: None)
  Receive Date: 20190912
  Receipt Date: 20251017
  Transmission Date: 20260118
  Serious: Yes (Other)
  Sender: ORION
  Company Number: CA-ORION CORPORATION ORION PHARMA-TREX2019-3305

PATIENT
  Age: 60 Year
  Sex: Female

DRUGS (56)
  1. METHOTREXATE [Suspect]
     Active Substance: METHOTREXATE
     Indication: Product used for unknown indication
  2. ACTEMRA [Suspect]
     Active Substance: TOCILIZUMAB
     Indication: Rheumatoid arthritis
  3. ACTEMRA [Suspect]
     Active Substance: TOCILIZUMAB
  4. ACTEMRA [Suspect]
     Active Substance: TOCILIZUMAB
  5. ACTEMRA [Suspect]
     Active Substance: TOCILIZUMAB
  6. ACTEMRA [Suspect]
     Active Substance: TOCILIZUMAB
  7. ACTEMRA [Suspect]
     Active Substance: TOCILIZUMAB
  8. ACTEMRA [Suspect]
     Active Substance: TOCILIZUMAB
  9. ACTEMRA [Suspect]
     Active Substance: TOCILIZUMAB
  10. ACTEMRA [Suspect]
     Active Substance: TOCILIZUMAB
  11. ACTEMRA [Suspect]
     Active Substance: TOCILIZUMAB
  12. ACTEMRA [Suspect]
     Active Substance: TOCILIZUMAB
  13. RITUXIMAB [Suspect]
     Active Substance: RITUXIMAB
     Indication: Rheumatoid arthritis
  14. RITUXIMAB [Suspect]
     Active Substance: RITUXIMAB
  15. RITUXIMAB [Suspect]
     Active Substance: RITUXIMAB
     Dosage: 1 CYCLICAL
  16. RITUXIMAB [Suspect]
     Active Substance: RITUXIMAB
  17. RITUXIMAB [Suspect]
     Active Substance: RITUXIMAB
  18. RITUXIMAB [Suspect]
     Active Substance: RITUXIMAB
  19. RITUXIMAB [Suspect]
     Active Substance: RITUXIMAB
  20. RITUXIMAB [Suspect]
     Active Substance: RITUXIMAB
  21. RITUXIMAB [Suspect]
     Active Substance: RITUXIMAB
  22. RITUXIMAB [Suspect]
     Active Substance: RITUXIMAB
  23. RITUXIMAB [Suspect]
     Active Substance: RITUXIMAB
  24. RITUXIMAB [Suspect]
     Active Substance: RITUXIMAB
  25. ATORVASTATIN CALCIUM [Concomitant]
     Active Substance: ATORVASTATIN CALCIUM
  26. ATORVASTATIN CALCIUM [Concomitant]
     Active Substance: ATORVASTATIN CALCIUM
  27. BETAMETHASONE VALERATE;NEOMYCIN SULFATE [Concomitant]
  28. FOLIC ACID [Concomitant]
     Active Substance: FOLIC ACID
  29. GABAPENTIN [Concomitant]
     Active Substance: GABAPENTIN
  30. GLICLAZIDE [Concomitant]
     Active Substance: GLICLAZIDE
  31. IRBESARTAN [Concomitant]
     Active Substance: IRBESARTAN
  32. SYNTHROID [Concomitant]
     Active Substance: LEVOTHYROXINE SODIUM
  33. XELJANZ [Concomitant]
     Active Substance: TOFACITINIB CITRATE
  34. BENADRYL [Concomitant]
     Active Substance: DIPHENHYDRAMINE HYDROCHLORIDE
  35. BENADRYL [Concomitant]
     Active Substance: DIPHENHYDRAMINE HYDROCHLORIDE
  36. BISOPROLOL [Concomitant]
     Active Substance: BISOPROLOL
  37. CALCIUM CARBONATE\ERGOCALCIFEROL [Concomitant]
     Active Substance: CALCIUM CARBONATE\ERGOCALCIFEROL
  38. CYCLOBENZAPRINE [Concomitant]
     Active Substance: CYCLOBENZAPRINE
  39. MAGNESIUM [Concomitant]
     Active Substance: MAGNESIUM
  40. METFORMIN [Concomitant]
     Active Substance: METFORMIN HYDROCHLORIDE
  41. METHYLPREDNISOLONE SODIUM SUCCINATE [Concomitant]
     Active Substance: METHYLPREDNISOLONE SODIUM SUCCINATE
  42. METHYLPREDNISOLONE SODIUM SUCCINATE [Concomitant]
     Active Substance: METHYLPREDNISOLONE SODIUM SUCCINATE
  43. NIFEDIPINE [Concomitant]
     Active Substance: NIFEDIPINE
  44. PANTOPRAZOLE [Concomitant]
     Active Substance: PANTOPRAZOLE
  45. PREDNISONE [Concomitant]
     Active Substance: PREDNISONE
  46. TYLENOL [Concomitant]
     Active Substance: ACETAMINOPHEN
  47. TYLENOL [Concomitant]
     Active Substance: ACETAMINOPHEN
  48. TYLENOL [Concomitant]
     Active Substance: ACETAMINOPHEN
  49. CETIRIZINE HYDROCHLORIDE [Concomitant]
     Active Substance: CETIRIZINE HYDROCHLORIDE
  50. LEUCOVORIN [Concomitant]
     Active Substance: LEUCOVORIN\LEUCOVORIN CALCIUM
  51. ACETAMINOPHEN [Concomitant]
     Active Substance: ACETAMINOPHEN
  52. CYMBALTA [Concomitant]
     Active Substance: DULOXETINE HYDROCHLORIDE
     Indication: Intervertebral disc compression
  53. LEUCOVORIN [Concomitant]
     Active Substance: LEUCOVORIN\LEUCOVORIN CALCIUM
  54. NIFEDIPINE [Concomitant]
     Active Substance: NIFEDIPINE
  55. BETAMETHASONE VALERATE;CLOTRIMAZOLE;NEOMYCIN [Concomitant]
  56. GLUCOPHAGE [Concomitant]
     Active Substance: METFORMIN HYDROCHLORIDE

REACTIONS (35)
  - Drug ineffective [Not Recovered/Not Resolved]
  - Abdominal pain [Not Recovered/Not Resolved]
  - Blood pressure increased [Not Recovered/Not Resolved]
  - Body temperature decreased [Not Recovered/Not Resolved]
  - Constipation [Not Recovered/Not Resolved]
  - Diarrhoea [Not Recovered/Not Resolved]
  - Diverticulitis [Not Recovered/Not Resolved]
  - Erythema [Not Recovered/Not Resolved]
  - Fatigue [Not Recovered/Not Resolved]
  - Hepatic enzyme abnormal [Not Recovered/Not Resolved]
  - Nasopharyngitis [Not Recovered/Not Resolved]
  - Nausea [Not Recovered/Not Resolved]
  - Seasonal allergy [Not Recovered/Not Resolved]
  - Vomiting [Not Recovered/Not Resolved]
  - Blood pressure diastolic decreased [Not Recovered/Not Resolved]
  - Blood pressure fluctuation [Not Recovered/Not Resolved]
  - Oxygen saturation decreased [Not Recovered/Not Resolved]
  - Blood pressure diastolic abnormal [Not Recovered/Not Resolved]
  - Blood pressure systolic increased [Not Recovered/Not Resolved]
  - Fall [Not Recovered/Not Resolved]
  - Musculoskeletal stiffness [Not Recovered/Not Resolved]
  - Headache [Not Recovered/Not Resolved]
  - Palpitations [Not Recovered/Not Resolved]
  - Arthralgia [Not Recovered/Not Resolved]
  - Blood pressure systolic abnormal [Not Recovered/Not Resolved]
  - Bronchitis [Not Recovered/Not Resolved]
  - COVID-19 [Not Recovered/Not Resolved]
  - Sinusitis [Not Recovered/Not Resolved]
  - Heart rate increased [Not Recovered/Not Resolved]
  - Decreased appetite [Not Recovered/Not Resolved]
  - Hyponatraemia [Not Recovered/Not Resolved]
  - Loss of consciousness [Not Recovered/Not Resolved]
  - Spinal fracture [Not Recovered/Not Resolved]
  - Intervertebral disc degeneration [Not Recovered/Not Resolved]
  - Pain in extremity [Not Recovered/Not Resolved]
